FAERS Safety Report 25878412 (Version 5)
Quarter: 2025Q4

REPORT INFORMATION
  Report Type: Report from Study
  Country: BR (occurrence: BR)
  Receive Date: 20251003
  Receipt Date: 20251021
  Transmission Date: 20260117
  Serious: Yes (Other)
  Sender: JOHNSON AND JOHNSON
  Company Number: BR-JNJFOC-20250941315

PATIENT
  Age: 53 Year
  Sex: Female
  Weight: 69 kg

DRUGS (3)
  1. INFLIXIMAB [Suspect]
     Active Substance: INFLIXIMAB
     Indication: Crohn^s disease
     Route: 041
     Dates: start: 20251003
  2. INFLIXIMAB [Suspect]
     Active Substance: INFLIXIMAB
     Indication: Crohn^s disease
     Dosage: 4 VIALS
     Route: 041
  3. REMICADE [Suspect]
     Active Substance: INFLIXIMAB
     Indication: Crohn^s disease
     Route: 041

REACTIONS (10)
  - Tuberculosis [Not Recovered/Not Resolved]
  - Pneumonia [Unknown]
  - Malaise [Unknown]
  - Spinal osteoarthritis [Unknown]
  - Lung disorder [Unknown]
  - Gastrointestinal inflammation [Unknown]
  - Product prescribing error [Unknown]
  - Inappropriate schedule of product administration [Unknown]
  - Product dose omission issue [Unknown]
  - Diarrhoea [Unknown]
